FAERS Safety Report 15781271 (Version 1)
Quarter: 2019Q1

REPORT INFORMATION
  Report Type: Spontaneous
  Country: US (occurrence: US)
  Receive Date: 20190102
  Receipt Date: 20190102
  Transmission Date: 20190417
  Serious: No
  Sender: FDA-Public Use
  Company Number: US-SA-2018SA393276

PATIENT
  Age: 48 Year

DRUGS (2)
  1. CERDELGA [Suspect]
     Active Substance: ELIGLUSTAT
     Dosage: 84 MG, BID
     Route: 048
     Dates: start: 20171214
  2. CERDELGA [Suspect]
     Active Substance: ELIGLUSTAT
     Dosage: 84 MG, QD
     Route: 048

REACTIONS (2)
  - Cough [Recovered/Resolved]
  - Gastrooesophageal reflux disease [Unknown]
